FAERS Safety Report 9517927 (Version 1)
Quarter: 2013Q3

REPORT INFORMATION
  Report Type: Spontaneous
  Country: GB (occurrence: None)
  Receive Date: 20130910
  Receipt Date: 20130910
  Transmission Date: 20140515
  Serious: Yes (Other)
  Sender: FDA-Public Use
  Company Number: 2013P1018976

PATIENT
  Age: 76 Year
  Sex: Female
  Weight: 58.1 kg

DRUGS (15)
  1. FLUCONAZOLE [Suspect]
     Dates: start: 20130812
  2. LOPERAMIDE [Concomitant]
  3. ADALAT [Concomitant]
  4. ALENDRONIC ACID [Concomitant]
  5. BENDROFLUMETHIAZIDE [Concomitant]
  6. CALCIUM CARBONATE [Concomitant]
  7. METHOTREXATE [Concomitant]
  8. PARACETAMOL [Concomitant]
  9. TRAMADOL [Concomitant]
  10. FOLIC ACID [Concomitant]
  11. IBUPROFEN [Concomitant]
  12. OXYBUTYNIN [Concomitant]
  13. AMOXICILLIN [Concomitant]
  14. NYSTAN /NYSTATIN [Concomitant]
  15. VITAMIN B COMPLEX [Concomitant]

REACTIONS (2)
  - Headache [None]
  - Erythema [None]
